FAERS Safety Report 6065749-6 (Version None)
Quarter: 2009Q1

REPORT INFORMATION
  Report Type: 
  Country: None (occurrence: None)
  Receive Date: 20090202
  Receipt Date: 20090115
  Transmission Date: 20090719
  Serious: Yes (Hospitalization)
  Sender: FDA-Public Use
  Company Number: 8041426

PATIENT
  Age: 67 Year
  Sex: Female
  Weight: 80.9 kg

DRUGS (10)
  1. TUSSIONEX [Suspect]
     Indication: COUGH
     Dosage: 5 ML 2/D PO
     Route: 048
     Dates: start: 20060101, end: 20090101
  2. CYMBALTA [Concomitant]
  3. BENICAR [Concomitant]
  4. AMBIEN CR [Concomitant]
  5. SPIRONOLACTONE [Concomitant]
  6. PREVACID [Concomitant]
  7. LOVAZA [Concomitant]
  8. VITAMIN D [Concomitant]
  9. FLAX OIL [Concomitant]
  10. CENTRUM [Concomitant]

REACTIONS (5)
  - BRONCHITIS [None]
  - CANDIDIASIS [None]
  - CHOKING [None]
  - PNEUMONIA [None]
  - SINUSITIS [None]
